FAERS Safety Report 8322531-4 (Version None)
Quarter: 2012Q2

REPORT INFORMATION
  Report Type: 
  Country: None (occurrence: None)
  Receive Date: 20120430
  Receipt Date: 20120416
  Transmission Date: 20120825
  Serious: Yes (Hospitalization)
  Sender: FDA-Public Use
  Company Number: JP-MYLANLABS-2012S1008104

PATIENT
  Age: 61 Year
  Sex: Male

DRUGS (3)
  1. PACLITAXEL [Suspect]
     Indication: LUNG SQUAMOUS CELL CARCINOMA STAGE III
     Route: 065
     Dates: end: 20090701
  2. INFLUENZA VIRUS VACCINE [Suspect]
     Indication: IMMUNISATION
     Route: 065
     Dates: start: 20091101
  3. CARBOPLATIN [Suspect]
     Indication: LUNG SQUAMOUS CELL CARCINOMA STAGE III
     Route: 065
     Dates: end: 20090701

REACTIONS (1)
  - TRAUMATIC LUNG INJURY [None]
